FAERS Safety Report 20010596 (Version 1)
Quarter: 2021Q4

REPORT INFORMATION
  Report Type: Other
  Country: US (occurrence: US)
  Receive Date: 20211028
  Receipt Date: 20211028
  Transmission Date: 20220303
  Serious: Yes (Death, Hospitalization, Other)
  Sender: FDA-Public Use
  Company Number: US-LARKEN LABORATORIES, INC.-2121125

PATIENT
  Age: 65 Year
  Sex: Male
  Weight: 79.55 kg

DRUGS (1)
  1. OFLOXACIN [Suspect]
     Active Substance: OFLOXACIN
     Indication: Pseudomonas infection

REACTIONS (1)
  - Acute hepatic failure [Fatal]
